FAERS Safety Report 4264754-X (Version None)
Quarter: 2004Q1

REPORT INFORMATION
  Report Type: 
  Country: None (occurrence: None)
  Receive Date: 20040106
  Receipt Date: 20031107
  Transmission Date: 20041129
  Serious: Yes (Other)
  Sender: FDA-Public Use
  Company Number: PHRM2003FR02994

PATIENT
  Age: 74 Year
  Sex: Male

DRUGS (2)
  1. LAMISIL [Suspect]
     Indication: INTERTRIGO
     Dosage: 250 MG, QD
     Route: 048
     Dates: start: 20031030, end: 20031103
  2. TADENAN [Concomitant]
     Indication: PROSTATIC ADENOMA
     Dosage: 50 MG, BID
     Route: 048
     Dates: end: 20031107

REACTIONS (9)
  - ANOREXIA [None]
  - BLOOD ALKALINE PHOSPHATASE INCREASED [None]
  - CHOLELITHIASIS [None]
  - CYTOLYTIC HEPATITIS [None]
  - EOSINOPHIL COUNT INCREASED [None]
  - GAMMA-GLUTAMYLTRANSFERASE INCREASED [None]
  - HEPATOMEGALY [None]
  - NAUSEA [None]
  - PRURITUS [None]
